FAERS Safety Report 5573323-0 (Version None)
Quarter: 2007Q4

REPORT INFORMATION
  Report Type: 
  Country: None (occurrence: None)
  Receive Date: 20071130
  Receipt Date: 20061018
  Transmission Date: 20080405
  Serious: Yes (Disabling)
  Sender: FDA-Public Use
  Company Number: WAES 0606USA04392

PATIENT
  Age: 72 Year
  Sex: Female
  Weight: 81.6475 kg

DRUGS (5)
  1. FOSAMAX [Suspect]
     Indication: OSTEOPOROSIS
     Dosage: 10 MG DAILY PO
     Route: 048
     Dates: start: 20000101, end: 20060521
  2. ADVIL LIQUI-GELS [Concomitant]
  3. TYLENOL W/ CODEINE [Concomitant]
  4. WESTCORT [Concomitant]
  5. ATENOLOL [Concomitant]

REACTIONS (1)
  - OSTEONECROSIS [None]
